FAERS Safety Report 22650356 (Version 1)
Quarter: 2023Q2

REPORT INFORMATION
  Report Type: Spontaneous
  Country: US (occurrence: US)
  Receive Date: 20230628
  Receipt Date: 20230628
  Transmission Date: 20230722
  Serious: No
  Sender: FDA-Public Use
  Company Number: US-MAYNE PHARMA-2022TMD00731

PATIENT
  Sex: Female

DRUGS (8)
  1. IMVEXXY [Suspect]
     Active Substance: ESTRADIOL
     Indication: Vulvovaginal dryness
     Dosage: 10 ?G, 1X/WEEK
     Route: 067
     Dates: end: 202206
  2. IMVEXXY [Suspect]
     Active Substance: ESTRADIOL
     Dosage: 10 ?G, LESS THAN 1X/WEEK
     Route: 067
     Dates: end: 202206
  3. IMVEXXY [Suspect]
     Active Substance: ESTRADIOL
     Indication: Vulvovaginal dryness
     Dosage: 4 ?G, ONCE
     Route: 067
     Dates: start: 202206, end: 202206
  4. IMVEXXY [Suspect]
     Active Substance: ESTRADIOL
     Dosage: 4 ?G
     Route: 067
     Dates: start: 20220710
  5. UNSPECIFIED ALLERGY PILLS [Concomitant]
  6. PREMARIN [Concomitant]
     Active Substance: ESTROGENS, CONJUGATED
     Dosage: UNK
     Dates: start: 202206, end: 202206
  7. REPLENS [Concomitant]
     Active Substance: CARBOMER 934\GLYCERIN\METHYLPARABEN\PROPYLPARABEN\SODIUM HYDROXIDE
  8. UNSPECIFIED THYROID REPLACEMENT [Concomitant]

REACTIONS (3)
  - Vulvovaginal swelling [Recovering/Resolving]
  - Vulvovaginal pain [Recovering/Resolving]
  - Off label use [Unknown]
